FAERS Safety Report 7117086-6 (Version None)
Quarter: 2010Q4

REPORT INFORMATION
  Report Type: 
  Country: None (occurrence: None)
  Receive Date: 20101122
  Receipt Date: 20101111
  Transmission Date: 20110411
  Serious: No
  Sender: FDA-Public Use
  Company Number: US-PFIZER INC-2010150452

PATIENT
  Sex: Male

DRUGS (2)
  1. DILANTIN-125 [Suspect]
     Dosage: 100 MG, UNK
  2. KEPPRA [Suspect]
     Dosage: UNK

REACTIONS (2)
  - HYPERMETABOLISM [None]
  - WEIGHT INCREASED [None]
